FAERS Safety Report 7656211-5 (Version None)
Quarter: 2011Q3

REPORT INFORMATION
  Report Type: 
  Country: None (occurrence: None)
  Receive Date: 20110801
  Receipt Date: 20110716
  Transmission Date: 20111222
  Serious: Yes (Death, Hospitalization, Other)
  Sender: FDA-Public Use
  Company Number: AUR-APL-2011-03963

PATIENT
  Age: 77 Year
  Sex: Female

DRUGS (1)
  1. METFORMIN HCL [Suspect]
     Indication: PRODUCT USED FOR UNKNOWN INDICATION
     Dosage: ORAL
     Route: 048

REACTIONS (7)
  - HYPOTENSION [None]
  - RENAL FAILURE [None]
  - BASE EXCESS INCREASED [None]
  - LACTIC ACIDOSIS [None]
  - BODY TEMPERATURE INCREASED [None]
  - INFECTION [None]
  - DRUG LEVEL ABOVE THERAPEUTIC [None]
